FAERS Safety Report 21994238 (Version 1)
Quarter: 2023Q1

REPORT INFORMATION
  Report Type: Spontaneous
  Country: CN (occurrence: CN)
  Receive Date: 20230215
  Receipt Date: 20230215
  Transmission Date: 20230417
  Serious: Yes (Other)
  Sender: FDA-Public Use
  Company Number: CN-AMGEN-CHNSP2023023969

PATIENT
  Age: 2 Year
  Sex: Female

DRUGS (12)
  1. FILGRASTIM [Suspect]
     Active Substance: FILGRASTIM
     Indication: Prophylaxis
     Dosage: UNK
     Route: 065
  2. DAUNORUBICIN [Concomitant]
     Active Substance: DAUNORUBICIN
     Indication: Acute myeloid leukaemia
     Dosage: UNK
     Dates: start: 202103
  3. CYTARABINE [Concomitant]
     Active Substance: CYTARABINE
     Indication: Acute myeloid leukaemia
     Dosage: UNK
     Dates: start: 202103
  4. OMACETAXINE MEPESUCCINATE [Concomitant]
     Active Substance: OMACETAXINE MEPESUCCINATE
     Indication: Acute myeloid leukaemia
     Dosage: UNK
     Dates: start: 202103
  5. ETOPOSIDE [Concomitant]
     Active Substance: ETOPOSIDE
     Indication: Acute myeloid leukaemia
  6. SEMUSTINE [Concomitant]
     Active Substance: SEMUSTINE
     Indication: Prophylaxis
  7. CLADRIBINE [Concomitant]
     Active Substance: CLADRIBINE
     Indication: Prophylaxis
  8. BUSULFAN [Concomitant]
     Active Substance: BUSULFAN
     Indication: Prophylaxis
  9. CYCLOPHOSPHAMIDE [Concomitant]
     Active Substance: CYCLOPHOSPHAMIDE
     Indication: Prophylaxis
  10. CYCLOSPORINE [Concomitant]
     Active Substance: CYCLOSPORINE
     Indication: Prophylaxis
  11. MYCOPHENOLATE MOFETIL [Concomitant]
     Active Substance: MYCOPHENOLATE MOFETIL
     Indication: Prophylaxis
  12. METHOTREXATE [Concomitant]
     Active Substance: METHOTREXATE
     Indication: Prophylaxis

REACTIONS (1)
  - Acute myeloid leukaemia [Unknown]

NARRATIVE: CASE EVENT DATE: 20211101
